FAERS Safety Report 5593270-8 (Version None)
Quarter: 2008Q1

REPORT INFORMATION
  Report Type: 
  Country: None (occurrence: None)
  Receive Date: 20080114
  Receipt Date: 20071016
  Transmission Date: 20080703
  Serious: Yes (Other)
  Sender: FDA-Public Use
  Company Number: 07C331

PATIENT
  Sex: Male

DRUGS (1)
  1. HYDROCORTISONE [Suspect]
     Indication: RASH
     Dosage: TOPICAL
     Route: 061
     Dates: start: 20071016

REACTIONS (1)
  - PAIN [None]
